FAERS Safety Report 8560338-3 (Version None)
Quarter: 2012Q3

REPORT INFORMATION
  Report Type: 
  Country: None (occurrence: None)
  Receive Date: 20120802
  Receipt Date: 20120720
  Transmission Date: 20120928
  Serious: Yes (Hospitalization)
  Sender: FDA-Public Use
  Company Number: US-ELI_LILLY_AND_COMPANY-US201203007898

PATIENT
  Sex: Male

DRUGS (4)
  1. CLOZARIL [Concomitant]
  2. ZYPREXA RELPREVV [Suspect]
     Indication: SCHIZOPHRENIA
     Dosage: 300 MG, MONTHLY (1/M)
     Dates: start: 20120314, end: 20120316
  3. INDERAL [Concomitant]
     Dosage: 20 MG, UNK
     Route: 048
  4. ZYPREXA [Suspect]
     Dosage: 20 MG, UNK
     Route: 048

REACTIONS (4)
  - FALL [None]
  - DRUG INTERACTION [None]
  - ORTHOSTATIC HYPOTENSION [None]
  - TACHYCARDIA [None]
